FAERS Safety Report 7833645-7 (Version None)
Quarter: 2011Q4

REPORT INFORMATION
  Report Type: 
  Country: None (occurrence: None)
  Receive Date: 20111024
  Receipt Date: 20111021
  Transmission Date: 20120403
  Serious: Yes (Other)
  Sender: FDA-Public Use
  Company Number: US-PFIZER INC-2011255888

PATIENT
  Sex: Female
  Weight: 56.689 kg

DRUGS (7)
  1. LYRICA [Suspect]
     Indication: ARTHRITIS
     Dosage: 75 MG, DAILY
     Route: 048
     Dates: start: 20111001
  2. ULTRAM [Concomitant]
     Indication: PAIN
     Dosage: 50 MG, 3X/DAY
     Route: 048
  3. VICODIN [Concomitant]
     Indication: ARTHRITIS
     Dosage: 5/500 MG, EVERY 8 HOURS
     Route: 048
  4. LYRICA [Suspect]
     Indication: FIBROMYALGIA
     Dosage: 75 MG, 2X/DAY
     Route: 048
  5. ZOLOFT [Concomitant]
     Indication: DEPRESSION
     Dosage: 200 MG, DAILY
  6. SOTALOL [Concomitant]
     Indication: ARRHYTHMIA
     Dosage: 80 MG, 3X/DAY
  7. TRAZODONE [Concomitant]
     Dosage: 100 MG, DAILY

REACTIONS (2)
  - FALL [None]
  - HEAD INJURY [None]
